FAERS Safety Report 7349793-4 (Version None)
Quarter: 2011Q1

REPORT INFORMATION
  Report Type: 
  Country: None (occurrence: None)
  Receive Date: 20110314
  Receipt Date: 20110303
  Transmission Date: 20110831
  Serious: Yes (Other)
  Sender: FDA-Public Use
  Company Number: US-SANOFI-AVENTIS-2011SA013487

PATIENT
  Sex: Female

DRUGS (7)
  1. TYLENOL [Concomitant]
  2. ALDACTONE [Concomitant]
  3. POTASSIUM [Concomitant]
  4. COUMADIN [Concomitant]
  5. IBANDRONATE SODIUM [Concomitant]
  6. MULTAQ [Suspect]
     Indication: ATRIAL FIBRILLATION
     Route: 048
  7. CARDIZEM [Concomitant]

REACTIONS (2)
  - CUTANEOUS LUPUS ERYTHEMATOSUS [None]
  - SKIN LESION [None]
